FAERS Safety Report 20081839 (Version 1)
Quarter: 2021Q4

REPORT INFORMATION
  Report Type: Spontaneous
  Country: DE (occurrence: DE)
  Receive Date: 20211117
  Receipt Date: 20211117
  Transmission Date: 20220303
  Serious: Yes (Hospitalization)
  Sender: FDA-Public Use
  Company Number: DE-ADRED-06989-01

PATIENT
  Age: 61 Year
  Sex: Female

DRUGS (7)
  1. IBUPROFEN [Suspect]
     Active Substance: IBUPROFEN
     Indication: Product used for unknown indication
     Dosage: UNK (REGULARLY FOR WEEKS, TABLETS)
     Route: 048
  2. ACC                                /00082801/ [Concomitant]
     Dosage: 300 MILLIGRAM, BID
     Route: 048
  3. FOSTER [Concomitant]
     Active Substance: BECLOMETHASONE\FORMOTEROL
     Dosage: UNK (1-0-0-0, DOSIERAEROSOL   )
     Route: 055
  4. METAMIZOL                          /06276701/ [Concomitant]
     Dosage: UNK (1 G, 1-1-1-1, TABLETTEN   )
     Route: 048
  5. PANTOPRAZOLE [Concomitant]
     Active Substance: PANTOPRAZOLE
     Dosage: UNK (40 MG, 1-0-1-0, TABLETTEN)
     Route: 048
  6. PIRITRAMIDA [Concomitant]
     Dosage: UNK UNK, PRN
     Route: 048
  7. LEVOTHYROXINE SODIUM [Concomitant]
     Active Substance: LEVOTHYROXINE SODIUM
     Dosage: UNK  (100/10 ?G, 1-0-0-0)
     Route: 048

REACTIONS (5)
  - Decreased appetite [Recovering/Resolving]
  - Haematoma [Recovering/Resolving]
  - Abdominal pain upper [Recovering/Resolving]
  - Vomiting [Recovering/Resolving]
  - Abdominal pain [Recovering/Resolving]
